FAERS Safety Report 6905040-6 (Version None)
Quarter: 2010Q3

REPORT INFORMATION
  Report Type: 
  Country: None (occurrence: None)
  Receive Date: 20100804
  Receipt Date: 20090831
  Transmission Date: 20110219
  Serious: No
  Sender: FDA-Public Use
  Company Number: US-PFIZER INC-2009242901

PATIENT
  Sex: Female
  Weight: 89.36 kg

DRUGS (4)
  1. LYRICA [Suspect]
     Indication: FIBROMYALGIA
     Dosage: 100 MG, 2X/DAY
     Route: 048
     Dates: start: 20060101
  2. SYNTHROID [Concomitant]
     Dosage: UNK
     Route: 048
  3. SITAGLIPTIN PHOSPHATE [Concomitant]
     Dosage: UNK
     Route: 048
  4. MICARDIS [Concomitant]
     Route: 048

REACTIONS (2)
  - DYSGEUSIA [None]
  - HEADACHE [None]
